FAERS Safety Report 15051915 (Version 1)
Quarter: 2018Q2

REPORT INFORMATION
  Report Type: Spontaneous
  Country: DE (occurrence: DE)
  Receive Date: 20180622
  Receipt Date: 20180622
  Transmission Date: 20180711
  Serious: Yes (Other)
  Sender: FDA-Public Use
  Company Number: DE-ASTRAZENECA-2018SE03060

PATIENT
  Age: 76 Year
  Sex: Female

DRUGS (3)
  1. TROMCARDIN [Concomitant]
     Active Substance: MAGNESIUM ASPARTATE\POTASSIUM ASPARTATE
  2. NEXIUM [Suspect]
     Active Substance: ESOMEPRAZOLE MAGNESIUM
     Indication: GASTROOESOPHAGEAL REFLUX DISEASE
     Route: 048
  3. NEXIUM CONTROL [Suspect]
     Active Substance: ESOMEPRAZOLE MAGNESIUM
     Indication: GASTROOESOPHAGEAL REFLUX DISEASE
     Route: 048

REACTIONS (3)
  - Weight decreased [Not Recovered/Not Resolved]
  - Dysphagia [Not Recovered/Not Resolved]
  - Gastroenteritis norovirus [Unknown]

NARRATIVE: CASE EVENT DATE: 20171220
